FAERS Safety Report 15543441 (Version 4)
Quarter: 2018Q4

REPORT INFORMATION
  Report Type: Report from Study
  Country: CA (occurrence: CA)
  Receive Date: 20181023
  Receipt Date: 20181211
  Transmission Date: 20190205
  Serious: Yes (Hospitalization, Disabling)
  Sender: FDA-Public Use
  Company Number: CA-ACTELION-A-NJ2018-179406

PATIENT
  Age: 69 Year
  Sex: Female

DRUGS (24)
  1. SPIRIVA [Concomitant]
     Active Substance: TIOTROPIUM BROMIDE MONOHYDRATE
  2. SPIRONOLACTONE. [Concomitant]
     Active Substance: SPIRONOLACTONE
  3. LIPITOR [Concomitant]
     Active Substance: ATORVASTATIN CALCIUM
  4. UPTRAVI [Suspect]
     Active Substance: SELEXIPAG
     Dosage: 600 MCG, UNK
     Route: 048
  5. VITAMIN K [Concomitant]
     Active Substance: PHYTONADIONE
  6. ADVAIR HFA [Concomitant]
     Active Substance: FLUTICASONE PROPIONATE\SALMETEROL XINAFOATE
  7. SENOKOT [Concomitant]
     Active Substance: SENNOSIDES
  8. WARFARIN [Concomitant]
     Active Substance: WARFARIN
  9. UPTRAVI [Suspect]
     Active Substance: SELEXIPAG
     Dosage: 400 MCG, UNK
     Route: 048
     Dates: start: 20180827
  10. LASIX [Concomitant]
     Active Substance: FUROSEMIDE
  11. UPTRAVI [Suspect]
     Active Substance: SELEXIPAG
     Indication: PULMONARY ARTERIAL HYPERTENSION
     Dosage: 800 MCG, BID
     Route: 048
  12. RABEPRAZOLE [Concomitant]
     Active Substance: RABEPRAZOLE
  13. METOLAZONE. [Concomitant]
     Active Substance: METOLAZONE
  14. ALLOPURINOL. [Concomitant]
     Active Substance: ALLOPURINOL
  15. WELLBUTRIN [Concomitant]
     Active Substance: BUPROPION HYDROCHLORIDE
  16. VOLIBRIS [Concomitant]
     Active Substance: AMBRISENTAN
  17. ESTROGEN [Concomitant]
     Active Substance: ESTROGENS
  18. UPTRAVI [Suspect]
     Active Substance: SELEXIPAG
     Dosage: 1000 MCG, UNK
     Route: 048
  19. UPTRAVI [Suspect]
     Active Substance: SELEXIPAG
     Dosage: 1200 MCG, UNK
     Route: 048
  20. REVATIO [Concomitant]
     Active Substance: SILDENAFIL CITRATE
  21. DIOVAN [Concomitant]
     Active Substance: VALSARTAN
  22. VITAMINE D [Concomitant]
  23. MULTIVITAMIN [Concomitant]
     Active Substance: VITAMINS
  24. FERRUM [Concomitant]
     Active Substance: FERROUS FUMARATE

REACTIONS (13)
  - Dyspnoea [Not Recovered/Not Resolved]
  - Toothache [Not Recovered/Not Resolved]
  - Pain [Not Recovered/Not Resolved]
  - Pain in extremity [Not Recovered/Not Resolved]
  - Condition aggravated [Not Recovered/Not Resolved]
  - Fatigue [Not Recovered/Not Resolved]
  - Abdominal cavity drainage [Not Recovered/Not Resolved]
  - Gout [Unknown]
  - Pain in jaw [Not Recovered/Not Resolved]
  - Peripheral swelling [Not Recovered/Not Resolved]
  - Chest pain [Not Recovered/Not Resolved]
  - Post procedural discharge [Not Recovered/Not Resolved]
  - Constipation [Unknown]

NARRATIVE: CASE EVENT DATE: 20180917
